FAERS Safety Report 9479265 (Version 1)
Quarter: 2013Q3

REPORT INFORMATION
  Report Type: Spontaneous
  Country: CH (occurrence: CH)
  Receive Date: 20130827
  Receipt Date: 20130827
  Transmission Date: 20140515
  Serious: Yes (Hospitalization)
  Sender: FDA-Public Use
  Company Number: CH-PFIZER INC-2013242011

PATIENT
  Age: 76 Year
  Sex: Male
  Weight: 64 kg

DRUGS (11)
  1. DALACIN C [Suspect]
     Indication: SKIN INFECTION
     Dosage: UNK
     Dates: start: 2013
  2. TASIGNA [Suspect]
     Indication: CHRONIC MYELOID LEUKAEMIA
     Dosage: 200 MG, 2X/DAY
     Route: 048
     Dates: start: 20111014, end: 20121210
  3. TASIGNA [Suspect]
     Dosage: 450 MG, 1X/DAY
     Route: 048
     Dates: start: 20110516, end: 20111013
  4. TASIGNA [Suspect]
     Dosage: 400 MG, 1X/DAY
     Route: 048
     Dates: start: 20100414, end: 20110515
  5. TASIGNA [Suspect]
     Dosage: 600 MG, 1X/DAY
     Route: 048
     Dates: start: 20091014, end: 20100413
  6. TASIGNA [Suspect]
     Dosage: 800 MG, 1X/DAY
     Route: 048
     Dates: start: 20090722, end: 20091014
  7. ASPIRIN ^BAYER^ [Suspect]
     Indication: ATRIAL FIBRILLATION
  8. CIPROXIN [Suspect]
     Indication: SKIN INFECTION
     Dosage: UNK
     Dates: start: 2013
  9. LOSARTAN POTASSIUM W/HYDROCHLOROTHIAZIDE [Concomitant]
     Dosage: 100 MG, DAILY
     Route: 048
  10. MARCOUMAR [Concomitant]
     Dosage: 1 DF (3MG), AS NEEDED
     Route: 048
  11. NEBILET [Concomitant]
     Dosage: 5 MG, DAILY
     Route: 048

REACTIONS (3)
  - Peripheral vascular disorder [Not Recovered/Not Resolved]
  - Skin necrosis [Not Recovered/Not Resolved]
  - Petechiae [Not Recovered/Not Resolved]
